FAERS Safety Report 23952312 (Version 2)
Quarter: 2024Q2

REPORT INFORMATION
  Report Type: Spontaneous
  Country: JP (occurrence: None)
  Receive Date: 20240607
  Receipt Date: 20240618
  Transmission Date: 20240716
  Serious: Yes (Hospitalization)
  Sender: FDA-Public Use
  Company Number: 2024A129469

PATIENT
  Age: 68 Year
  Sex: Male

DRUGS (2)
  1. IMFINZI [Suspect]
     Active Substance: DURVALUMAB
     Indication: Hepatocellular carcinoma
     Route: 041
  2. IMJUDO [Suspect]
     Active Substance: TREMELIMUMAB\TREMELIMUMAB-ACTL
     Indication: Hepatocellular carcinoma
     Dosage: 300.0MG UNKNOWN
     Route: 041

REACTIONS (4)
  - Cholangitis acute [Recovering/Resolving]
  - Diabetic ketoacidosis [Recovering/Resolving]
  - Renal failure [Recovering/Resolving]
  - Type 1 diabetes mellitus [Recovering/Resolving]
